FAERS Safety Report 14560912 (Version 3)
Quarter: 2018Q2

REPORT INFORMATION
  Report Type: Report from Study
  Country: None (occurrence: US)
  Receive Date: 20180222
  Receipt Date: 20180611
  Transmission Date: 20180711
  Serious: Yes (Other)
  Sender: FDA-Public Use
  Company Number: US-ABBVIE-18K-163-2261778-00

PATIENT
  Age: 25 Year
  Sex: Female

DRUGS (1)
  1. HUMIRA [Suspect]
     Active Substance: ADALIMUMAB
     Indication: HIDRADENITIS
     Route: 058

REACTIONS (7)
  - Depression [Unknown]
  - Drug ineffective [Unknown]
  - Hidradenitis [Unknown]
  - Shoulder operation [Unknown]
  - Seizure [Unknown]
  - Breast abscess [Unknown]
  - Groin abscess [Unknown]

NARRATIVE: CASE EVENT DATE: 201709
